FAERS Safety Report 17251857 (Version 1)
Quarter: 2020Q1

REPORT INFORMATION
  Report Type: Report from Study
  Country: US (occurrence: US)
  Receive Date: 20200109
  Receipt Date: 20200109
  Transmission Date: 20200409
  Serious: Yes (Disabling, Other)
  Sender: FDA-Public Use
  Company Number: US-SA-2015SA055148

PATIENT
  Age: 52 Year
  Sex: Male

DRUGS (1)
  1. TERIFLUNOMIDE. [Suspect]
     Active Substance: TERIFLUNOMIDE
     Indication: MULTIPLE SCLEROSIS
     Dosage: 14 MG,QD
     Route: 048
     Dates: start: 20140822

REACTIONS (6)
  - Memory impairment [Unknown]
  - Visual impairment [Unknown]
  - Disability [Not Recovered/Not Resolved]
  - Diarrhoea [Unknown]
  - Unevaluable event [Unknown]
  - Stress [Unknown]
